FAERS Safety Report 9098285 (Version 2)
Quarter: 2013Q1

REPORT INFORMATION
  Report Type: Report from Study
  Country: FR (occurrence: FR)
  Receive Date: 20130213
  Receipt Date: 20130322
  Transmission Date: 20140127
  Serious: Yes (Hospitalization)
  Sender: FDA-Public Use
  Company Number: FR-PFIZER INC-2013043897

PATIENT
  Age: 62 Year
  Sex: Male

DRUGS (14)
  1. SUTENT [Suspect]
     Indication: CHOLANGIOCARCINOMA
     Dosage: 37.5 MG, 1X/DAY
     Dates: start: 20120904, end: 20121028
  2. SUTENT [Suspect]
     Dosage: 25 MG, 1X/DAY
     Dates: start: 20121105, end: 20121222
  3. SUTENT [Suspect]
     Dosage: 25 MG, 1X/DAY
     Dates: start: 20130114, end: 20130205
  4. OXYCONTIN [Concomitant]
     Dosage: 20 MG IN MORNING, 30 MG IN EVENING
  5. LYRICA LP [Concomitant]
     Dosage: 100 MG, 2X/DAY
  6. COVERSYL [Concomitant]
     Dosage: 2.5 MG IN MORNING
  7. OXYNORM [Concomitant]
     Dosage: 5 MG, EVERY 4 HRS, AS NEEDED
  8. DIAZEPAM [Concomitant]
     Dosage: 5 MG IN EVENING
  9. INEXIUM [Concomitant]
     Dosage: 40 MG IN EVENING
  10. LASILIX [Concomitant]
     Dosage: 20 MG PER DAY IF BLOOD PRESSURE } 9/6
  11. LOVENOX [Concomitant]
     Dosage: 1 INJECTION PER DAY
  12. DUPHALAC [Concomitant]
     Dosage: 2 SACHETS IN MORNING
  13. SKENAN [Concomitant]
     Dosage: UNK
     Dates: end: 20121222
  14. FORTIMEL [Concomitant]
     Dosage: 2 DF, 1X/DAY

REACTIONS (3)
  - General physical health deterioration [Recovered/Resolved]
  - Decreased appetite [Recovered/Resolved]
  - Asthenia [Recovered/Resolved]
